FAERS Safety Report 8561041 (Version 2)
Quarter: 2012Q4

REPORT INFORMATION
  Report Type: 
  Country: FR (occurrence: FR)
  Receive Date: 20120514
  Receipt Date: 20121206
  Transmission Date: 20130627
  Serious: Yes (Life-Threatening, Hospitalization)
  Sender: FDA-Public Use
  Company Number: FR-GLAXOSMITHKLINE-B0799436A

PATIENT
  Age: 77 Year
  Sex: Female

DRUGS (4)
  1. ARIXTRA [Suspect]
     Indication: PULMONARY EMBOLISM
     Dosage: 7.5MG Per day
     Route: 058
     Dates: start: 20120413, end: 20120419
  2. FORADIL [Concomitant]
  3. PULMICORT [Concomitant]
  4. OMEPRAZOLE [Concomitant]

REACTIONS (13)
  - Muscle haemorrhage [Recovered/Resolved]
  - Pelvic haematoma [Recovered/Resolved]
  - Pericardial haemorrhage [Recovered/Resolved]
  - Shock haemorrhagic [Recovered/Resolved]
  - Renal failure acute [Recovered/Resolved]
  - Malaise [Recovered/Resolved]
  - Hypotension [Recovered/Resolved]
  - Vomiting [Recovered/Resolved]
  - Peripheral artery aneurysm [Recovered/Resolved]
  - Hyperkalaemia [Recovered/Resolved]
  - Blood creatinine increased [Recovered/Resolved]
  - Oliguria [Recovered/Resolved]
  - Haematoma [Recovered/Resolved]
